FAERS Safety Report 6149761-4 (Version None)
Quarter: 2009Q2

REPORT INFORMATION
  Report Type: 
  Country: None (occurrence: None)
  Receive Date: 20090409
  Receipt Date: 20090327
  Transmission Date: 20091009
  Serious: Yes (Other)
  Sender: FDA-Public Use
  Company Number: MA-TYCO HEALTHCARE/MALLINCKRODT-T200900762

PATIENT

DRUGS (3)
  1. MORPHINE [Suspect]
     Indication: LOCAL ANAESTHESIA
  2. BOTOX [Suspect]
     Indication: LOCAL ANAESTHESIA
  3. BUPIVACAINE [Suspect]
     Indication: LOCAL ANAESTHESIA

REACTIONS (1)
  - PARAPLEGIA [None]
